FAERS Safety Report 22525176 (Version 1)
Quarter: 2023Q2

REPORT INFORMATION
  Report Type: Spontaneous
  Country: JP (occurrence: JP)
  Receive Date: 20230606
  Receipt Date: 20230606
  Transmission Date: 20230721
  Serious: Yes (Other)
  Sender: FDA-Public Use
  Company Number: JP-ABBVIE-2316124US

PATIENT
  Age: 85 Year
  Sex: Female

DRUGS (1)
  1. ASENAPINE MALEATE [Suspect]
     Active Substance: ASENAPINE MALEATE
     Indication: Dyssomnia
     Route: 060

REACTIONS (2)
  - Coma [Recovered/Resolved]
  - Sedation complication [Recovered/Resolved]
